FAERS Safety Report 17246508 (Version 5)
Quarter: 2020Q4

REPORT INFORMATION
  Report Type: Report from Study
  Country: CO (occurrence: CO)
  Receive Date: 20200108
  Receipt Date: 20201206
  Transmission Date: 20210113
  Serious: Yes (Hospitalization)
  Sender: FDA-Public Use
  Company Number: PHHY2019CO084723

PATIENT
  Age: 36 Year
  Sex: Female
  Weight: 73 kg

DRUGS (2)
  1. DAIVOBET [Concomitant]
     Active Substance: BETAMETHASONE DIPROPIONATE\CALCIPOTRIENE
     Indication: PSORIASIS
     Dosage: UNK, QD
     Route: 061
  2. COSENTYX [Suspect]
     Active Substance: SECUKINUMAB
     Indication: PSORIASIS
     Dosage: 300 MG, QMO
     Route: 058
     Dates: start: 20181103, end: 20190222

REACTIONS (5)
  - Skin plaque [Unknown]
  - Maternal exposure during pregnancy [Unknown]
  - Intra-abdominal haematoma [Unknown]
  - Maternal exposure during breast feeding [Unknown]
  - Normal newborn [Unknown]

NARRATIVE: CASE EVENT DATE: 20190127
